FAERS Safety Report 5758455-6 (Version None)
Quarter: 2008Q2

REPORT INFORMATION
  Report Type: 
  Country: None (occurrence: None)
  Receive Date: 20080530
  Receipt Date: 20080519
  Transmission Date: 20081010
  Serious: Yes (Life-Threatening, Hospitalization)
  Sender: FDA-Public Use
  Company Number: 8032166

PATIENT
  Age: 47 Year
  Sex: Female
  Weight: 43 kg

DRUGS (5)
  1. KEPPRA [Suspect]
     Indication: EPILEPSY
     Dosage: 250 MG 2/D PO
     Route: 048
     Dates: start: 20080313, end: 20080101
  2. KEPPRA [Suspect]
     Indication: EPILEPSY
     Dosage: 500 MG 2/D PO
     Route: 048
     Dates: start: 20080407, end: 20080101
  3. KEPPRA [Suspect]
     Indication: EPILEPSY
     Dosage: 1500 MG 2/D PO
     Route: 048
     Dates: start: 20080501
  4. EPILIM [Concomitant]
  5. PHENYTOIN [Concomitant]

REACTIONS (3)
  - CONDITION AGGRAVATED [None]
  - CONVULSION [None]
  - STATUS EPILEPTICUS [None]
